FAERS Safety Report 14947184 (Version 4)
Quarter: 2021Q3

REPORT INFORMATION
  Report Type: Report from Study
  Country: GB (occurrence: GB)
  Receive Date: 20180529
  Receipt Date: 20210716
  Transmission Date: 20211014
  Serious: Yes (Death, Hospitalization)
  Sender: FDA-Public Use
  Company Number: GB-JNJFOC-20180528890

PATIENT
  Age: 35 Year
  Sex: Male
  Weight: 87.1 kg

DRUGS (29)
  1. NAPROXEN. [Concomitant]
     Active Substance: NAPROXEN
     Route: 065
     Dates: start: 20180206, end: 20180327
  2. MORPHINE [Concomitant]
     Active Substance: MORPHINE
     Route: 065
     Dates: start: 20180328, end: 20180406
  3. LAXIDO [Concomitant]
     Active Substance: POLYETHYLENE GLYCOL 3350\POTASSIUM CHLORIDE\SODIUM BICARBONATE\SODIUM CHLORIDE
     Dates: start: 20190225, end: 20190302
  4. SANDOCAL                           /00751528/ [Concomitant]
     Dates: start: 20190325
  5. COTRIMOXAZOLE [Concomitant]
     Active Substance: SULFAMETHOXAZOLE\TRIMETHOPRIM
     Route: 065
     Dates: start: 20180329
  6. CYCLIZINE                          /00014902/ [Concomitant]
     Dates: start: 20181130, end: 20190220
  7. OXYCODONE [Concomitant]
     Active Substance: OXYCODONE
     Dates: start: 20190214, end: 20190303
  8. PARACETAMOL [Concomitant]
     Active Substance: ACETAMINOPHEN
     Route: 065
     Dates: start: 20180425
  9. OMEPRAZOLE. [Concomitant]
     Active Substance: OMEPRAZOLE
     Dates: start: 20190222
  10. TAZOCIN [Concomitant]
     Active Substance: PIPERACILLIN SODIUM\TAZOBACTAM SODIUM
     Route: 065
     Dates: start: 20180416, end: 20180419
  11. COCODAMOL [Concomitant]
     Active Substance: ACETAMINOPHEN\CODEINE PHOSPHATE
     Route: 065
     Dates: start: 20180215, end: 20180327
  12. DEXAMETHASONE. [Concomitant]
     Active Substance: DEXAMETHASONE
     Dates: start: 20190328
  13. IBUPROFEN. [Concomitant]
     Active Substance: IBUPROFEN
     Dates: start: 20190220, end: 20190224
  14. LACTULOSE. [Concomitant]
     Active Substance: LACTULOSE
     Dates: start: 20190228, end: 20190409
  15. TRAMADOL. [Concomitant]
     Active Substance: TRAMADOL
     Dates: start: 20190304
  16. TRIMETHOPRIM. [Concomitant]
     Active Substance: TRIMETHOPRIM
     Route: 065
     Dates: start: 20180206, end: 20180213
  17. DEXAMETHASONE. [Concomitant]
     Active Substance: DEXAMETHASONE
     Dates: start: 20181220, end: 20181223
  18. MORPHINE [Concomitant]
     Active Substance: MORPHINE
     Dates: start: 20190220
  19. OMEPRAZOLE. [Concomitant]
     Active Substance: OMEPRAZOLE
     Route: 065
     Dates: start: 20180329, end: 20180406
  20. ENOXAPARIN SODIUM. [Concomitant]
     Active Substance: ENOXAPARIN SODIUM
     Dates: start: 20190220, end: 20190304
  21. CEFUROXIME                         /00454602/ [Concomitant]
     Active Substance: CEFUROXIME SODIUM
     Dates: start: 20190220, end: 20190225
  22. DIHYDROCODEINE [Concomitant]
     Active Substance: DIHYDROCODEINE
     Dates: start: 20190228, end: 20190304
  23. STELARA [Suspect]
     Active Substance: USTEKINUMAB
     Indication: PSORIASIS
     Route: 058
     Dates: start: 20170511, end: 20171123
  24. MACROGOL [Concomitant]
     Active Substance: POLYETHYLENE GLYCOLS
     Route: 065
     Dates: start: 20180329, end: 20180406
  25. METOCLOPRAMIDE. [Concomitant]
     Active Substance: METOCLOPRAMIDE
     Dates: start: 20181029
  26. ONDANSETRON [Concomitant]
     Active Substance: ONDANSETRON
     Dates: start: 20181223
  27. STELARA [Suspect]
     Active Substance: USTEKINUMAB
     Route: 058
     Dates: start: 20180329, end: 20190225
  28. SENNA [SENNA ALEXANDRINA] [Concomitant]
     Active Substance: SENNA LEAF
     Route: 065
     Dates: start: 20180329, end: 20190225
  29. DEXAMETHASONE. [Concomitant]
     Active Substance: DEXAMETHASONE
     Route: 065
     Dates: start: 20180328

REACTIONS (2)
  - Ewing^s sarcoma [Fatal]
  - Urinary tract infection [Unknown]

NARRATIVE: CASE EVENT DATE: 201803
